FAERS Safety Report 5188589-9 (Version None)
Quarter: 2006Q4

REPORT INFORMATION
  Report Type: 
  Country: None (occurrence: None)
  Receive Date: 20061221
  Receipt Date: 20061129
  Transmission Date: 20070319
  Serious: Yes (Other)
  Sender: FDA-Public Use
  Company Number: JP-ELI_LILLY_AND_COMPANY-JP200611005562

PATIENT
  Age: 48 Year
  Sex: Female

DRUGS (1)
  1. HUMULIN R [Suspect]
     Indication: DIABETES MELLITUS NON-INSULIN-DEPENDENT
     Dosage: UNK, 3/D

REACTIONS (6)
  - CONVULSION [None]
  - GASTROENTERITIS [None]
  - HEART RATE INCREASED [None]
  - HYPOGLYCAEMIA [None]
  - HYPOKALAEMIA [None]
  - VENTRICULAR FIBRILLATION [None]
